FAERS Safety Report 24325060 (Version 1)
Quarter: 2024Q3

REPORT INFORMATION
  Report Type: Spontaneous
  Country: FR (occurrence: FR)
  Receive Date: 20240916
  Receipt Date: 20240916
  Transmission Date: 20241017
  Serious: Yes (Death, Other)
  Sender: NOVARTIS
  Company Number: FR-002147023-NVSC2021FR166012

PATIENT
  Age: 73 Year
  Sex: Female
  Weight: 41 kg

DRUGS (11)
  1. DABRAFENIB [Suspect]
     Active Substance: DABRAFENIB
     Indication: Metastatic malignant melanoma
     Dosage: 300 MG
     Route: 048
     Dates: start: 20210417, end: 20210502
  2. DABRAFENIB [Suspect]
     Active Substance: DABRAFENIB
     Dosage: 300 MG
     Route: 048
     Dates: start: 20210519, end: 20210531
  3. DABRAFENIB [Suspect]
     Active Substance: DABRAFENIB
     Dosage: 300 MG
     Route: 048
     Dates: start: 20210605, end: 20210729
  4. TRAMETINIB [Suspect]
     Active Substance: TRAMETINIB
     Indication: Metastatic malignant melanoma
     Dosage: 2 MG
     Route: 048
     Dates: start: 20210417, end: 20210502
  5. TRAMETINIB [Suspect]
     Active Substance: TRAMETINIB
     Dosage: 2 MG
     Route: 048
     Dates: start: 20210519, end: 20210531
  6. TRAMETINIB [Suspect]
     Active Substance: TRAMETINIB
     Dosage: 1.5 MG
     Route: 048
     Dates: start: 20210605, end: 20210729
  7. ENCORAFENIB [Concomitant]
     Active Substance: ENCORAFENIB
     Indication: Product used for unknown indication
     Dosage: UNK
     Route: 065
     Dates: start: 20210729, end: 20210823
  8. BINIMETINIB [Concomitant]
     Active Substance: BINIMETINIB
     Indication: Product used for unknown indication
     Dosage: UNK
     Route: 065
     Dates: start: 20210729, end: 20210823
  9. MORPHINE [Concomitant]
     Active Substance: MORPHINE
     Indication: Arthralgia
     Dosage: UNK
     Route: 065
  10. METHYLPREDNISOLONE [Concomitant]
     Active Substance: METHYLPREDNISOLONE
     Indication: Arthralgia
     Dosage: UNK
     Route: 065
  11. DACARBAZINE [Concomitant]
     Active Substance: DACARBAZINE
     Indication: Product used for unknown indication
     Dosage: UNK
     Route: 065
     Dates: start: 20210825

REACTIONS (7)
  - Metastatic malignant melanoma [Fatal]
  - Malignant neoplasm progression [Fatal]
  - Metastases to lung [Unknown]
  - Metastases to lymph nodes [Unknown]
  - Metastases to peritoneum [Unknown]
  - Metastases to bone [Unknown]
  - Pyrexia [Recovered/Resolved]

NARRATIVE: CASE EVENT DATE: 20210527
